FAERS Safety Report 12446154 (Version 2)
Quarter: 2016Q3

REPORT INFORMATION
  Report Type: Report from Study
  Country: CZ (occurrence: CZ)
  Receive Date: 20160608
  Receipt Date: 20160720
  Transmission Date: 20161109
  Serious: Yes (Death, Life-Threatening, Hospitalization, Other)
  Sender: FDA-Public Use
  Company Number: CZ-BRISTOL-MYERS SQUIBB COMPANY-BMS-2016-043197

PATIENT
  Sex: Female

DRUGS (5)
  1. LETROX [Suspect]
     Active Substance: LEVOTHYROXINE SODIUM
     Indication: HYPOTHYROIDISM
     Route: 065
  2. NIVOLUMAB [Suspect]
     Active Substance: NIVOLUMAB
     Indication: NON-SMALL CELL LUNG CANCER
     Dosage: 201 MG, UNK
     Route: 042
     Dates: start: 20160203
  3. CITALOPRAM [Suspect]
     Active Substance: CITALOPRAM HYDROBROMIDE
     Indication: PRODUCT USED FOR UNKNOWN INDICATION
     Dosage: UNK
     Route: 065
     Dates: start: 201407
  4. NIVOLUMAB [Suspect]
     Active Substance: NIVOLUMAB
     Dosage: 201 MG, UNK
     Route: 042
     Dates: start: 20160216
  5. NEUROL /00595201/ [Suspect]
     Active Substance: ALPRAZOLAM
     Indication: PRODUCT USED FOR UNKNOWN INDICATION
     Dosage: UNK UNK, PRN
     Route: 065

REACTIONS (6)
  - Circulatory collapse [Unknown]
  - Pleural effusion [Unknown]
  - Pleurodesis [Unknown]
  - Respiratory failure [Unknown]
  - Malignant neoplasm progression [Fatal]
  - Shock [Unknown]
